FAERS Safety Report 17297654 (Version 3)
Quarter: 2020Q1

REPORT INFORMATION
  Report Type: Spontaneous
  Country: GB (occurrence: GB)
  Receive Date: 20200121
  Receipt Date: 20200129
  Transmission Date: 20200409
  Serious: Yes (Other)
  Sender: FDA-Public Use
  Company Number: GB-MYLANLABS-2020M1000006

PATIENT
  Age: 35 Year
  Sex: Female

DRUGS (1)
  1. CLOZARIL [Suspect]
     Active Substance: CLOZAPINE
     Indication: SCHIZOPHRENIA
     Dosage: UNK
     Route: 048
     Dates: start: 20191224, end: 202001

REACTIONS (3)
  - Eosinophil count increased [Recovering/Resolving]
  - Differential white blood cell count abnormal [Not Recovered/Not Resolved]
  - White blood cell count increased [Unknown]

NARRATIVE: CASE EVENT DATE: 20191231
